FAERS Safety Report 4784925-3 (Version None)
Quarter: 2005Q3

REPORT INFORMATION
  Report Type: 
  Country: None (occurrence: None)
  Receive Date: 20050930
  Receipt Date: 20050926
  Transmission Date: 20060218
  Serious: Yes (Hospitalization)
  Sender: FDA-Public Use
  Company Number: PHRM2005FR02561

PATIENT
  Age: 23 Year
  Sex: Male

DRUGS (2)
  1. PREVISCAN [Suspect]
     Dosage: 20 MG, QD
     Route: 048
     Dates: start: 20050719, end: 20050823
  2. TRILEPTAL [Suspect]
     Dosage: 300 MG, UNK
     Route: 048
     Dates: start: 20050616, end: 20050823

REACTIONS (11)
  - CEREBRAL HAEMORRHAGE [None]
  - CHILLS [None]
  - CSF SHUNT OPERATION [None]
  - DIFFICULTY IN WALKING [None]
  - HEPATIC FAILURE [None]
  - HYDROCEPHALUS [None]
  - HYPERTHERMIA MALIGNANT [None]
  - NERVOUS SYSTEM DISORDER [None]
  - RENAL FAILURE [None]
  - RHABDOMYOLYSIS [None]
  - SOMNOLENCE [None]
